FAERS Safety Report 7504730-4 (Version None)
Quarter: 2011Q2

REPORT INFORMATION
  Report Type: 
  Country: None (occurrence: None)
  Receive Date: 20110525
  Receipt Date: 20110131
  Transmission Date: 20111010
  Serious: No
  Sender: FDA-Public Use
  Company Number: US-AMGEN-KDL443347

PATIENT
  Age: 51 Year
  Sex: Male

DRUGS (7)
  1. NEUPOGEN [Suspect]
     Indication: WHITE BLOOD CELL COUNT
     Route: 065
  2. NICOTINE TRANSDERMAL [Concomitant]
  3. ARANESP [Suspect]
     Indication: WHITE BLOOD CELL COUNT
     Route: 065
  4. METHADONE HCL [Concomitant]
     Dosage: UNK
  5. PEGINTERFERON ALFA-2A [Concomitant]
     Indication: HEPATITIS C
     Dosage: 180 A?G, QWK
     Route: 058
     Dates: start: 20100710
  6. RIBAVIRIN [Concomitant]
     Indication: HEPATITIS C
     Dosage: 1200 MG, QD
     Route: 048
     Dates: start: 20100710
  7. UNSPECIFIED MEDICATION [Concomitant]

REACTIONS (11)
  - PARAESTHESIA [None]
  - PAIN [None]
  - CHEST PAIN [None]
  - PYREXIA [None]
  - CONTUSION [None]
  - WHITE BLOOD CELL COUNT DECREASED [None]
  - SWELLING [None]
  - NAUSEA [None]
  - RED BLOOD CELL COUNT DECREASED [None]
  - HYPOAESTHESIA [None]
  - FATIGUE [None]
